FAERS Safety Report 13465222 (Version 1)
Quarter: 2017Q2

REPORT INFORMATION
  Report Type: Spontaneous
  Country: RU (occurrence: RU)
  Receive Date: 20170421
  Receipt Date: 20170421
  Transmission Date: 20170830
  Serious: Yes (Other)
  Sender: FDA-Public Use
  Company Number: RU-ASTRAZENECA-2017SE40214

PATIENT
  Age: 70 Year
  Sex: Female

DRUGS (4)
  1. TANAKAN [Concomitant]
     Active Substance: GINKGO
  2. LORISTA [Concomitant]
     Active Substance: LOSARTAN POTASSIUM
  3. PHYSIOTENS [Concomitant]
     Active Substance: MOXONIDINE
  4. SYMBICORT [Suspect]
     Active Substance: BUDESONIDE\FORMOTEROL FUMARATE DIHYDRATE
     Dosage: 2 INHALED, TWO TIMES A DAY
     Route: 055
     Dates: start: 201701

REACTIONS (3)
  - Blood pressure increased [Not Recovered/Not Resolved]
  - Drug ineffective [Not Recovered/Not Resolved]
  - Transient ischaemic attack [Unknown]

NARRATIVE: CASE EVENT DATE: 201701
